FAERS Safety Report 5208750-4 (Version None)
Quarter: 2007Q1

REPORT INFORMATION
  Report Type: 
  Country: None (occurrence: None)
  Receive Date: 20070116
  Receipt Date: 20070106
  Transmission Date: 20070707
  Serious: Yes (Other)
  Sender: FDA-Public Use
  Company Number: PHBS2007BR00727

PATIENT
  Age: 59 Year
  Sex: Female
  Weight: 68 kg

DRUGS (3)
  1. ZADITEN SRO [Suspect]
     Indication: ALLERGIC COUGH
     Dosage: 2 MG, QD
     Route: 048
     Dates: start: 20061227
  2. PRELONE [Concomitant]
     Indication: HYPERSENSITIVITY
     Dosage: 5 MG, QD
     Route: 048
     Dates: start: 20061201
  3. BRONDILAT [Concomitant]
     Indication: ALLERGIC COUGH
     Dosage: UNK, QD
     Route: 048
     Dates: start: 20070105

REACTIONS (4)
  - DIZZINESS [None]
  - FEELING DRUNK [None]
  - POLLAKIURIA [None]
  - SOMNOLENCE [None]
